FAERS Safety Report 8143956-6 (Version None)
Quarter: 2012Q1

REPORT INFORMATION
  Report Type: 
  Country: None (occurrence: None)
  Receive Date: 20120217
  Receipt Date: 20120217
  Transmission Date: 20120608
  Serious: No
  Sender: FDA-Public Use
  Company Number: None

PATIENT
  Age: 69 Year
  Sex: Female
  Weight: 71.667 kg

DRUGS (2)
  1. EXEMESTANE [Suspect]
     Indication: HORMONE LEVEL ABNORMAL
     Dosage: DAILY
     Route: 048
     Dates: start: 20110715, end: 20111020
  2. EXEMESTANE [Suspect]
     Indication: BREAST CANCER
     Dosage: DAILY
     Route: 048
     Dates: start: 20110715, end: 20111020

REACTIONS (6)
  - HYPOAESTHESIA [None]
  - MUSCULOSKELETAL STIFFNESS [None]
  - TRIGGER FINGER [None]
  - PAIN IN EXTREMITY [None]
  - MYALGIA [None]
  - ARTHRALGIA [None]
